FAERS Safety Report 16834936 (Version 1)
Quarter: 2019Q3

REPORT INFORMATION
  Report Type: Spontaneous
  Country: US (occurrence: US)
  Receive Date: 20190920
  Receipt Date: 20190920
  Transmission Date: 20191005
  Serious: No
  Sender: FDA-Public Use
  Company Number: US-BAYER-2019-163579

PATIENT
  Age: 87 Year
  Sex: Female
  Weight: 83 kg

DRUGS (2)
  1. VITAMINS NOS [Concomitant]
     Active Substance: VITAMINS
  2. ALEVE [Suspect]
     Active Substance: NAPROXEN SODIUM
     Indication: INFLAMMATION
     Dosage: 0.5 DF
     Route: 048

REACTIONS (1)
  - Product use in unapproved indication [Unknown]
